FAERS Safety Report 8426321-3 (Version None)
Quarter: 2012Q2

REPORT INFORMATION
  Report Type: 
  Country: None (occurrence: None)
  Receive Date: 20120611
  Receipt Date: 20120608
  Transmission Date: 20120825
  Serious: Yes (Other)
  Sender: FDA-Public Use
  Company Number: US-PFIZER INC-2012138699

PATIENT
  Sex: Female
  Weight: 127 kg

DRUGS (7)
  1. MORPHINE [Concomitant]
     Dosage: 30 MG, 3X/DAY
  2. ARICEPT [Concomitant]
     Dosage: 10 MG, 1X/DAY
  3. CYMBALTA [Concomitant]
     Dosage: 60 MG, 1X/DAY
  4. CELEBREX [Suspect]
     Indication: BONE PAIN
     Dosage: UNK
     Route: 048
     Dates: start: 20040101
  5. GABAPENTIN [Concomitant]
     Dosage: 400 MG, 3X/DAY
  6. ASPIRIN [Concomitant]
     Dosage: 81 MG, UNK
  7. CELEBREX [Suspect]
     Indication: ARTHRITIS

REACTIONS (6)
  - SURGERY [None]
  - SPINAL DISORDER [None]
  - BONE DISORDER [None]
  - THERMAL BURN [None]
  - PAIN [None]
  - BODY HEIGHT DECREASED [None]
